FAERS Safety Report 26070666 (Version 2)
Quarter: 2025Q4

REPORT INFORMATION
  Report Type: Spontaneous
  Country: US (occurrence: US)
  Receive Date: 20251120
  Receipt Date: 20251204
  Transmission Date: 20260117
  Serious: Yes (Hospitalization)
  Sender: BELCHER PHARMACEUTICALS
  Company Number: US-BPI LABS, LLC-2025US005820

PATIENT

DRUGS (3)
  1. SEMAGLUTIDE [Suspect]
     Active Substance: SEMAGLUTIDE
     Indication: Weight control
     Dosage: STRENGTH: 5 MG/2 ML (2.5 MG/ML) (2 UNITS), 1/WEEK
     Route: 058
  2. PROZAC [Concomitant]
     Active Substance: FLUOXETINE HYDROCHLORIDE
     Dosage: UNK
     Route: 065
  3. LORAZEPAM [Concomitant]
     Active Substance: LORAZEPAM
     Dosage: UNK
     Route: 065

REACTIONS (7)
  - Nausea [Unknown]
  - Vomiting [Unknown]
  - Dyspepsia [Unknown]
  - Diarrhoea [Unknown]
  - Headache [Unknown]
  - Fatigue [Unknown]
  - Off label use [Unknown]

NARRATIVE: CASE EVENT DATE: 20251013
